FAERS Safety Report 4962919-2 (Version None)
Quarter: 2006Q2

REPORT INFORMATION
  Report Type: 
  Country: None (occurrence: None)
  Receive Date: 20060405
  Receipt Date: 20051228
  Transmission Date: 20061013
  Serious: Yes (Hospitalization)
  Sender: FDA-Public Use
  Company Number: DE-BRISTOL-MYERS SQUIBB COMPANY-13230669

PATIENT
  Age: 65 Year
  Sex: Male

DRUGS (10)
  1. ERBITUX [Suspect]
     Indication: COLORECTAL CANCER METASTATIC
     Dosage: THERAPY INITIATED 19-OCT-2005.
     Route: 042
     Dates: start: 20051214, end: 20051214
  2. IRINOTECAN [Suspect]
     Indication: COLORECTAL CANCER METASTATIC
     Dosage: THERAPY INITIATED 19-OCT-2005.
     Route: 042
     Dates: start: 20051130, end: 20051130
  3. TROPISETRON [Concomitant]
     Dates: start: 20051130, end: 20051130
  4. ATROPINE [Concomitant]
     Dates: start: 20051130, end: 20051130
  5. TAVEGIL [Concomitant]
     Dates: start: 20051214, end: 20051214
  6. FUROSEMIDE [Concomitant]
  7. HYDROCHLOROTHIAZIDE [Concomitant]
  8. CILAZAPRIL + HCTZ [Concomitant]
  9. THIAMAZOLE [Concomitant]
  10. IRENAT [Concomitant]

REACTIONS (6)
  - BILE DUCT STENOSIS [None]
  - CARDIAC FAILURE [None]
  - CHOLANGITIS [None]
  - JAUNDICE CHOLESTATIC [None]
  - LIPASE INCREASED [None]
  - MALIGNANT NEOPLASM PROGRESSION [None]
